FAERS Safety Report 4589430-5 (Version None)
Quarter: 2005Q1

REPORT INFORMATION
  Report Type: 
  Country: None (occurrence: None)
  Receive Date: 20050216
  Receipt Date: 20050208
  Transmission Date: 20050727
  Serious: Yes (Hospitalization)
  Sender: FDA-Public Use
  Company Number: 2005021965

PATIENT
  Age: 31 Year
  Sex: Male

DRUGS (5)
  1. TAHOR (ATORVASTATIN) [Suspect]
     Indication: HYPERCHOLESTEROLAEMIA
     Dosage: 10 MG (1 IN 1 D), ORAL
     Route: 048
  2. CYCLOSPORINE [Suspect]
     Indication: ILL-DEFINED DISORDER
     Dosage: 240 MG (2 IN 1 D), ORAL
     Route: 048
  3. MYCOPHENOLATE MOFETIL (MYCOPHENOLATE MOFETIL) [Suspect]
     Indication: ILL-DEFINED DISORDER
     Dosage: 2 GRAM (2 IN 1 D), ORAL
     Route: 048
  4. IMATINIB MESILATE (IMATINIB MESILATE) [Suspect]
     Indication: CHRONIC MYELOID LEUKAEMIA
     Dosage: 400 MG (1 IN 1 D), ORAL
     Route: 048
     Dates: start: 20030401
  5. PAROXETINE HCL [Suspect]
     Indication: ILL-DEFINED DISORDER
     Dosage: 10 MG (20 MG, 1 IN 1 D), ORAL
     Route: 048

REACTIONS (4)
  - BLOOD ALKALINE PHOSPHATASE INCREASED [None]
  - BLOOD CREATININE INCREASED [None]
  - DRUG LEVEL INCREASED [None]
  - HYPERURICAEMIA [None]
